FAERS Safety Report 8155453-2 (Version None)
Quarter: 2012Q1

REPORT INFORMATION
  Report Type: 
  Country: None (occurrence: None)
  Receive Date: 20120215
  Receipt Date: 20120206
  Transmission Date: 20120608
  Serious: Yes (Other)
  Sender: FDA-Public Use
  Company Number: 2011SP059947

PATIENT
  Age: 65 Year
  Sex: Male
  Weight: 112 kg

DRUGS (3)
  1. SINGULAIR [Suspect]
     Indication: ASTHMA
     Dosage: 10 MG;QD
     Dates: start: 20111117
  2. EZETIMIBE [Concomitant]
  3. DESLORATADINE [Suspect]
     Indication: ASTHMA
     Dosage: 5 MG
     Dates: start: 20040101

REACTIONS (2)
  - POLYNEUROPATHY [None]
  - INTERVERTEBRAL DISC PROTRUSION [None]
